FAERS Safety Report 8728466 (Version 2)
Quarter: 2013Q1

REPORT INFORMATION
  Report Type: Spontaneous
  Country: US (occurrence: US)
  Receive Date: 20120817
  Receipt Date: 20130214
  Transmission Date: 20140127
  Serious: Yes (Hospitalization, Other)
  Sender: FDA-Public Use
  Company Number: US-ELI_LILLY_AND_COMPANY-US201104002008

PATIENT
  Age: 69 Year
  Sex: Male

DRUGS (12)
  1. FORTEO [Suspect]
     Indication: OSTEOPOROSIS
     Dosage: 20 UG, QD
     Route: 065
     Dates: start: 201103
  2. FORTEO [Suspect]
     Dosage: 20 UG, QD
  3. FORTEO [Suspect]
  4. CALCIUM [Concomitant]
  5. ASPIRIN [Concomitant]
     Dosage: 81 MG, QD
  6. MAGNESIUM OXIDE [Concomitant]
     Dosage: 400 MG, QD
  7. VITAMIN D [Concomitant]
     Dosage: 50000 IU, OTHER
  8. FLOMAX [Concomitant]
     Dosage: 0.4 MG, QD
  9. ZOLOFT [Concomitant]
     Dosage: 50 MG, QD
  10. NEXIUM [Concomitant]
     Dosage: UNK, PRN
  11. ANDROGEL [Concomitant]
     Dosage: UNK, 2/W
  12. TYLENOL                                 /SCH/ [Concomitant]
     Indication: PAIN
     Dosage: UNK, PRN

REACTIONS (15)
  - Abdominal pain [Recovered/Resolved]
  - Abdominal pain [Recovered/Resolved]
  - Weight decreased [Recovered/Resolved]
  - Eating disorder [Recovered/Resolved]
  - Colon operation [Recovered/Resolved]
  - Hernia repair [Recovered/Resolved]
  - Parenteral nutrition [Unknown]
  - Loss of consciousness [Unknown]
  - Abdominal pain [Unknown]
  - Crohn^s disease [Unknown]
  - Irritable bowel syndrome [Unknown]
  - Constipation [Unknown]
  - Drug dose omission [Unknown]
  - Fall [Unknown]
  - Head injury [Unknown]
